FAERS Safety Report 20525464 (Version 1)
Quarter: 2022Q1

REPORT INFORMATION
  Report Type: Spontaneous
  Country: US (occurrence: US)
  Receive Date: 20220228
  Receipt Date: 20220228
  Transmission Date: 20220423
  Serious: No
  Sender: FDA-Public Use
  Company Number: US-SA-SAC20220222000721

PATIENT
  Sex: Female

DRUGS (11)
  1. DUPIXENT [Suspect]
     Active Substance: DUPILUMAB
     Indication: Dermatitis atopic
     Dosage: 300 MG, QOW
     Route: 058
     Dates: start: 20211122
  2. NYSTATIN [Concomitant]
     Active Substance: NYSTATIN
  3. FLUCONAZOLE [Concomitant]
     Active Substance: FLUCONAZOLE
  4. AMITRIPTYLINE [Concomitant]
     Active Substance: AMITRIPTYLINE
  5. ANASTROZOLE [Concomitant]
     Active Substance: ANASTROZOLE
  6. JARDIANCE [Concomitant]
     Active Substance: EMPAGLIFLOZIN
  7. MELOXICAM [Concomitant]
     Active Substance: MELOXICAM
  8. NITROFURANTOIN MONOHYDRATE [Concomitant]
     Active Substance: NITROFURANTOIN MONOHYDRATE
  9. CLOBETASOL PROPIONATE [Concomitant]
     Active Substance: CLOBETASOL PROPIONATE
  10. LINZESS [Concomitant]
     Active Substance: LINACLOTIDE
  11. TRULICITY [Concomitant]
     Active Substance: DULAGLUTIDE

REACTIONS (2)
  - Oral fungal infection [Unknown]
  - Biopsy [Unknown]
